FAERS Safety Report 6097921-3 (Version None)
Quarter: 2009Q1

REPORT INFORMATION
  Report Type: 
  Country: None (occurrence: None)
  Receive Date: 20090227
  Receipt Date: 20090225
  Transmission Date: 20090719
  Serious: Yes (Hospitalization)
  Sender: FDA-Public Use
  Company Number: US-BRISTOL-MYERS SQUIBB COMPANY-14521728

PATIENT
  Age: 73 Year
  Sex: Male
  Weight: 90 kg

DRUGS (5)
  1. CISPLATIN [Suspect]
     Indication: OESOPHAGEAL SQUAMOUS CELL CARCINOMA
     Dosage: START DATE-19-JAN-2009
     Dates: start: 20090216, end: 20090216
  2. ERBITUX [Suspect]
     Indication: OESOPHAGEAL SQUAMOUS CELL CARCINOMA
     Dosage: START DATE-19-JAN-2009
     Dates: start: 20090216, end: 20090216
  3. TAXOL [Suspect]
     Indication: OESOPHAGEAL SQUAMOUS CELL CARCINOMA
     Dosage: START DATE-19-JAN-2009
     Dates: start: 20090216, end: 20090216
  4. RADIATION THERAPY [Suspect]
     Indication: OESOPHAGEAL SQUAMOUS CELL CARCINOMA
     Dosage: 1DF-4074CGY. NO OF FRACTION-21, ELASPSED DAYS-35,
  5. TOPROL-XL [Concomitant]

REACTIONS (2)
  - DEHYDRATION [None]
  - DIZZINESS [None]
